FAERS Safety Report 23955572 (Version 2)
Quarter: 2024Q2

REPORT INFORMATION
  Report Type: Spontaneous
  Country: JP (occurrence: JP)
  Receive Date: 20240610
  Receipt Date: 20240620
  Transmission Date: 20240715
  Serious: Yes (Other)
  Sender: FDA-Public Use
  Company Number: JP-GILEAD-2024-0674448

PATIENT
  Age: 71 Year
  Sex: Male
  Weight: 46.9 kg

DRUGS (1)
  1. VEMLIDY [Suspect]
     Active Substance: TENOFOVIR ALAFENAMIDE FUMARATE
     Indication: Chronic hepatitis B
     Dosage: 25 MG
     Route: 065

REACTIONS (2)
  - Nephropathy toxic [Unknown]
  - Tubulointerstitial nephritis [Unknown]
